FAERS Safety Report 13373553 (Version 2)
Quarter: 2017Q2

REPORT INFORMATION
  Report Type: Spontaneous
  Country: US (occurrence: US)
  Receive Date: 20170327
  Receipt Date: 20170421
  Transmission Date: 20170830
  Serious: Yes (Other)
  Sender: FDA-Public Use
  Company Number: US-WEST-WARD PHARMACEUTICALS CORP.-US-H14001-17-00643

PATIENT
  Sex: Female
  Weight: 72.64 kg

DRUGS (6)
  1. ZANTAC [Concomitant]
     Active Substance: RANITIDINE HYDROCHLORIDE
     Indication: GASTROOESOPHAGEAL REFLUX DISEASE
     Route: 065
  2. IPRATROPIUM BROMIDE. [Suspect]
     Active Substance: IPRATROPIUM BROMIDE
     Indication: VASOMOTOR RHINITIS
     Route: 045
  3. IPRATROPIUM BROMIDE. [Suspect]
     Active Substance: IPRATROPIUM BROMIDE
     Indication: COUGH
  4. VITAMIN D [Concomitant]
     Active Substance: CHOLECALCIFEROL
     Indication: PRODUCT USED FOR UNKNOWN INDICATION
     Route: 065
  5. IPRATROPIUM BROMIDE. [Suspect]
     Active Substance: IPRATROPIUM BROMIDE
     Indication: VASOMOTOR RHINITIS
     Route: 045
  6. IPRATROPIUM BROMIDE. [Suspect]
     Active Substance: IPRATROPIUM BROMIDE
     Indication: COUGH

REACTIONS (14)
  - Aphonia [Unknown]
  - Larynx irritation [Unknown]
  - Dry skin [Unknown]
  - Skin exfoliation [Unknown]
  - Exposure via eye contact [Unknown]
  - Choking [Not Recovered/Not Resolved]
  - Dyspnoea [Unknown]
  - Drug ineffective [Unknown]
  - Accidental exposure to product [Unknown]
  - Intentional product use issue [Unknown]
  - Rash macular [Unknown]
  - Dysphonia [Unknown]
  - Cough [Unknown]
  - Ocular hyperaemia [Unknown]
